FAERS Safety Report 5788848-2 (Version None)
Quarter: 2008Q2

REPORT INFORMATION
  Report Type: 
  Country: None (occurrence: None)
  Receive Date: 20080626
  Receipt Date: 20071227
  Transmission Date: 20081010
  Serious: No
  Sender: FDA-Public Use
  Company Number: US-ASTRAZENECA-2007UW26215

PATIENT
  Age: 70 Year
  Sex: Male
  Weight: 117.9 kg

DRUGS (10)
  1. PULMICORT FLEXHALER [Suspect]
     Indication: RESPIRATORY TRACT IRRITATION
     Route: 055
  2. COMBIVENT [Concomitant]
  3. CAPTOPRIL [Concomitant]
  4. ASPIRIN [Concomitant]
  5. FELODIPINE [Concomitant]
  6. SIMVASTATIN [Concomitant]
  7. GLIPIZIDE [Concomitant]
  8. MUCUS RELIEF EXPECTORANT [Concomitant]
  9. MIRALAX [Concomitant]
  10. CHROMIUM [Concomitant]

REACTIONS (1)
  - DEAFNESS UNILATERAL [None]
